FAERS Safety Report 9718588 (Version 4)
Quarter: 2014Q1

REPORT INFORMATION
  Report Type: Spontaneous
  Country: US (occurrence: US)
  Receive Date: 20131127
  Receipt Date: 20140214
  Transmission Date: 20141002
  Serious: Yes (Other)
  Sender: FDA-Public Use
  Company Number: US-PFIZER INC-2013336170

PATIENT
  Age: 75 Year
  Sex: Male
  Weight: 70.75 kg

DRUGS (4)
  1. LIPITOR [Suspect]
     Indication: BLOOD CHOLESTEROL INCREASED
     Dosage: 20 MG, 1X/DAY
  2. ACCUPRIL [Suspect]
     Indication: HYPERTENSION
     Dosage: 20 MG, 1X/DAY
  3. ACCUPRIL [Suspect]
     Dosage: 40 MG, 1X/DAY
     Dates: end: 201310
  4. MICARDIS [Suspect]
     Indication: HYPERTENSION
     Dosage: UNK
     Dates: start: 2013

REACTIONS (2)
  - Arterial occlusive disease [Unknown]
  - Blood pressure inadequately controlled [Not Recovered/Not Resolved]
